FAERS Safety Report 18906301 (Version 3)
Quarter: 2021Q3

REPORT INFORMATION
  Report Type: Spontaneous
  Country: US (occurrence: US)
  Receive Date: 20210217
  Receipt Date: 20210820
  Transmission Date: 20211014
  Serious: No
  Sender: FDA-Public Use
  Company Number: US-MYLANLABS-2021M1005200

PATIENT
  Sex: Female

DRUGS (2)
  1. CLONIDINE TRANSDERMAL SYSTEM [Suspect]
     Active Substance: CLONIDINE
     Indication: PRODUCT USED FOR UNKNOWN INDICATION
     Dosage: 0.05 M MILLIGRAM, QD (CHANGED WEEKLY)
     Route: 062
  2. CLONIDINE TRANSDERMAL SYSTEM [Suspect]
     Active Substance: CLONIDINE
     Dosage: 0.05 M MILLIGRAM, QD (CHANGED WEEKLY)
     Route: 062

REACTIONS (3)
  - Application site hypersensitivity [Unknown]
  - Application site vesicles [Unknown]
  - Application site irritation [Unknown]
